FAERS Safety Report 18222353 (Version 6)
Quarter: 2020Q4

REPORT INFORMATION
  Report Type: Report from Study
  Country: JP (occurrence: JP)
  Receive Date: 20200902
  Receipt Date: 20201014
  Transmission Date: 20210113
  Serious: Yes (Hospitalization, Other)
  Sender: FDA-Public Use
  Company Number: JP-ASTELLAS-2020JP001051

PATIENT
  Age: 78 Year
  Sex: Female
  Weight: 47 kg

DRUGS (21)
  1. GATIFLO [Concomitant]
     Active Substance: GATIFLOXACIN
     Indication: CATARACT
     Dosage: AS NEEDED, ADEQUATE DOSE, UNKNOWN FREQ.
     Route: 047
     Dates: start: 201909
  2. LOXONIN [Concomitant]
     Active Substance: LOXOPROFEN SODIUM
     Indication: PAIN
     Dosage: AS NEEDED, ADEQUATE DOSE, UNKNOWN FREQ.
     Route: 050
     Dates: start: 201910
  3. MIYA-BM [Concomitant]
     Active Substance: CLOSTRIDIUM BUTYRICUM SPORES STRAIN M-55
     Indication: FAECES SOFT
     Route: 048
     Dates: start: 20200119
  4. ASP2215 [Suspect]
     Active Substance: GILTERITINIB
     Indication: ACUTE MYELOID LEUKAEMIA
     Route: 048
     Dates: start: 20191111, end: 20191114
  5. LOXOPROFEN SODIUM HYDRATE [Concomitant]
     Active Substance: LOXOPROFEN SODIUM DIHYDRATE
     Indication: PAIN
     Dosage: 60 MG, ONCE DAILY,AS NEEDED
     Route: 048
     Dates: start: 201910
  6. WHITE PETROLATUM [Concomitant]
     Active Substance: PETROLATUM
     Indication: PROPHYLAXIS
     Dosage: AS NEEDED, ADEQUATE DOSE, UNKNOWN FREQ.
     Route: 050
     Dates: start: 20191124
  7. ASP2215 [Suspect]
     Active Substance: GILTERITINIB
     Route: 048
     Dates: start: 20191129, end: 20200828
  8. MYSLEE [Concomitant]
     Active Substance: ZOLPIDEM TARTRATE
     Indication: INSOMNIA
     Dosage: 5 MG, ONCE DAILY,AS NEEDED
     Route: 048
     Dates: start: 2014
  9. HEPARINOID [Concomitant]
     Active Substance: CHONDROITIN SULFATE (BOVINE)
     Indication: PROPHYLAXIS
     Dosage: AS NEEDED, ADEQUATE DOSE, UNKNOWN FREQ.
     Route: 050
     Dates: start: 20191108
  10. AS3156378 [Suspect]
     Active Substance: AZACITIDINE
     Route: 042
     Dates: start: 20200117, end: 20200803
  11. TRAZENTA [Concomitant]
     Active Substance: LINAGLIPTIN
     Indication: DIABETES MELLITUS
     Route: 048
     Dates: start: 2016
  12. ASP2215 [Suspect]
     Active Substance: GILTERITINIB
     Route: 048
     Dates: start: 20200910
  13. AS3156378 [Suspect]
     Active Substance: AZACITIDINE
     Indication: ACUTE MYELOID LEUKAEMIA
     Route: 042
     Dates: start: 20191111, end: 20191114
  14. AS3156378 [Suspect]
     Active Substance: AZACITIDINE
     Route: 042
     Dates: start: 20200918
  15. REBAMIPIDE [Concomitant]
     Active Substance: REBAMIPIDE
     Indication: PROPHYLAXIS
     Dosage: 100 MG, ONCE DAILY, AS NEEDED
     Route: 048
     Dates: start: 201910
  16. FML [Concomitant]
     Active Substance: FLUOROMETHOLONE
     Indication: CATARACT
     Dosage: AS NEEDED, ADEQUATE DOSE, UNKNOWN FREQ.
     Route: 047
     Dates: start: 20191030
  17. CALONAL [Concomitant]
     Active Substance: ACETAMINOPHEN
     Indication: PAIN
     Dosage: 400 MG, AS NEEDED
     Route: 048
     Dates: start: 20191030
  18. AZUNOL GARGLE LIQUID [Concomitant]
     Indication: PROPHYLAXIS
     Dosage: AS NEEDED, ADEQUATE DOSE, UNKNOWN FREQ.
     Route: 050
     Dates: start: 20191118
  19. NEXIUM [Concomitant]
     Active Substance: ESOMEPRAZOLE MAGNESIUM
     Indication: PROPHYLAXIS
     Route: 048
     Dates: start: 2015
  20. BROMFENAC SODIUM HYDRATE [Concomitant]
     Indication: CATARACT
     Dosage: AS NEEDED, ADEQUATE DOSE, UNKNOWN FREQ.
     Route: 047
     Dates: start: 201909
  21. FLUCONAZOLE. [Concomitant]
     Active Substance: FLUCONAZOLE
     Indication: PROPHYLAXIS
     Route: 048
     Dates: start: 20191126

REACTIONS (3)
  - Cellulitis [Recovered/Resolved]
  - Febrile neutropenia [Recovered/Resolved]
  - Septic embolus [Recovered/Resolved]

NARRATIVE: CASE EVENT DATE: 20200218
